FAERS Safety Report 11929504 (Version 2)
Quarter: 2016Q1

REPORT INFORMATION
  Report Type: Spontaneous
  Country: CN (occurrence: CN)
  Receive Date: 20160120
  Receipt Date: 20160229
  Transmission Date: 20160526
  Serious: Yes (Hospitalization, Other)
  Sender: FDA-Public Use
  Company Number: CN-APOTEX-2016AP005857

PATIENT
  Age: 60 Year
  Sex: Female
  Weight: 47 kg

DRUGS (5)
  1. PAXIL [Suspect]
     Active Substance: PAROXETINE HYDROCHLORIDE
     Indication: ANXIETY
     Dosage: 0.5 DF, QD
     Route: 048
     Dates: start: 2002
  2. PAXIL [Suspect]
     Active Substance: PAROXETINE HYDROCHLORIDE
     Dosage: UNK
     Route: 065
  3. PROZAC [Suspect]
     Active Substance: FLUOXETINE HYDROCHLORIDE
     Indication: ANXIETY
     Dosage: 1 DF, QD
     Route: 048
  4. PAXIL [Suspect]
     Active Substance: PAROXETINE HYDROCHLORIDE
     Dosage: 1 DF, QD
     Route: 065
  5. PAXIL [Suspect]
     Active Substance: PAROXETINE HYDROCHLORIDE
     Dosage: 1.5 DF, QD
     Route: 048
     Dates: start: 201511

REACTIONS (14)
  - Fracture [Recovered/Resolved]
  - Impaired gastric emptying [Unknown]
  - Anger [Unknown]
  - Mood altered [Unknown]
  - Hyperhidrosis [Not Recovered/Not Resolved]
  - Anxiety [Recovered/Resolved]
  - Aspartate aminotransferase increased [Not Recovered/Not Resolved]
  - Intentional product misuse [Unknown]
  - Drug ineffective [Unknown]
  - Osteoporosis [Not Recovered/Not Resolved]
  - Haematuria [Recovering/Resolving]
  - Urinary tract infection [Unknown]
  - Alanine aminotransferase increased [Not Recovered/Not Resolved]
  - Insomnia [Not Recovered/Not Resolved]

NARRATIVE: CASE EVENT DATE: 2015
